FAERS Safety Report 9001425 (Version 1)
Quarter: 2013Q1

REPORT INFORMATION
  Report Type: Spontaneous
  Country: US (occurrence: US)
  Receive Date: 20130107
  Receipt Date: 20130107
  Transmission Date: 20140127
  Serious: Yes (Hospitalization)
  Sender: FDA-Public Use
  Company Number: US-009507513-1301USA002174

PATIENT
  Age: 74 Year
  Sex: Male

DRUGS (6)
  1. SINGULAIR [Suspect]
     Route: 048
  2. FLIXOTIDE [Suspect]
     Route: 055
  3. IZILOX [Suspect]
     Route: 048
  4. SIMVASTATIN [Concomitant]
     Route: 048
  5. VASTAREL [Concomitant]
     Indication: INFECTIVE EXACERBATION OF CHRONIC OBSTRUCTIVE AIRWAYS DISEASE
     Route: 048
  6. NEXIUM [Concomitant]
     Indication: PRODUCT USED FOR UNKNOWN INDICATION

REACTIONS (6)
  - Weight decreased [Unknown]
  - Renal disorder [Unknown]
  - Pruritus [Unknown]
  - Jaundice [Unknown]
  - Hepatitis cholestatic [Unknown]
  - Asthenia [Unknown]
